FAERS Safety Report 7033986-X (Version None)
Quarter: 2010Q4

REPORT INFORMATION
  Report Type: 
  Country: None (occurrence: None)
  Receive Date: 20101005
  Receipt Date: 20100928
  Transmission Date: 20110411
  Serious: Yes (Other)
  Sender: FDA-Public Use
  Company Number: TPA2010A02963

PATIENT
  Age: 60 Year
  Sex: Male
  Weight: 88.4514 kg

DRUGS (2)
  1. DEXLANSOPRAZOLE [Suspect]
     Indication: GASTROOESOPHAGEAL REFLUX DISEASE
     Dosage: 60 MG, 1 IN 1 D, PER ORAL
     Route: 048
     Dates: start: 20100301, end: 20100901
  2. MAGNESIUM SULFATE [Concomitant]

REACTIONS (3)
  - ARRHYTHMIA [None]
  - BLOOD MAGNESIUM DECREASED [None]
  - NERVOUS SYSTEM DISORDER [None]
